FAERS Safety Report 7780794-8 (Version None)
Quarter: 2011Q3

REPORT INFORMATION
  Report Type: 
  Country: None (occurrence: None)
  Receive Date: 20110927
  Receipt Date: 20110922
  Transmission Date: 20111222
  Serious: No
  Sender: FDA-Public Use
  Company Number: US-PFIZER INC-2011226724

PATIENT

DRUGS (1)
  1. CAMPTOSAR [Suspect]
     Dosage: UNK

REACTIONS (2)
  - EXTRAVASATION [None]
  - INFLAMMATION [None]
